FAERS Safety Report 7006160-0 (Version None)
Quarter: 2010Q3

REPORT INFORMATION
  Report Type: 
  Country: None (occurrence: None)
  Receive Date: 20100921
  Receipt Date: 20100909
  Transmission Date: 20110219
  Serious: Yes (Other)
  Sender: FDA-Public Use
  Company Number: CA-PFIZER INC-2010114228

PATIENT
  Age: 56 Year
  Sex: Male

DRUGS (1)
  1. XALATAN [Suspect]
     Dosage: UNK
     Route: 047
     Dates: start: 20100513

REACTIONS (3)
  - EYE SWELLING [None]
  - OCULAR HYPERAEMIA [None]
  - VISION BLURRED [None]
